FAERS Safety Report 8345245-3 (Version None)
Quarter: 2012Q2

REPORT INFORMATION
  Report Type: 
  Country: None (occurrence: None)
  Receive Date: 20120508
  Receipt Date: 20120430
  Transmission Date: 20120825
  Serious: Yes (Other)
  Sender: FDA-Public Use
  Company Number: CY-BAYER-2011-032509

PATIENT
  Sex: Female
  Weight: 50 kg

DRUGS (1)
  1. YASMIN [Suspect]
     Indication: ORAL CONTRACEPTION
     Dosage: UNK
     Route: 048
     Dates: start: 20110101, end: 20110101

REACTIONS (3)
  - ABNORMAL WITHDRAWAL BLEEDING [None]
  - FOETAL MALPOSITION [None]
  - PREGNANCY ON ORAL CONTRACEPTIVE [None]
